FAERS Safety Report 5190515-3 (Version None)
Quarter: 2006Q4

REPORT INFORMATION
  Report Type: 
  Country: None (occurrence: None)
  Receive Date: 20061222
  Receipt Date: 20061220
  Transmission Date: 20070319
  Serious: Yes (Hospitalization)
  Sender: FDA-Public Use
  Company Number: FR-GLAXOSMITHKLINE-B0451391A

PATIENT
  Age: 87 Year
  Sex: Male
  Weight: 62 kg

DRUGS (11)
  1. DEROXAT [Suspect]
     Indication: ANXIETY
     Dosage: 1UNIT PER DAY
     Route: 048
     Dates: end: 20060906
  2. MODOPAR [Suspect]
     Indication: PARKINSON'S DISEASE
     Dosage: 4UNIT PER DAY
     Route: 048
     Dates: end: 20060907
  3. VASTAREL [Suspect]
     Indication: MENIERE'S DISEASE
     Dosage: 1UNIT PER DAY
     Route: 048
     Dates: end: 20060906
  4. ARICEPT [Suspect]
     Indication: DEMENTIA ALZHEIMER'S TYPE
     Dosage: 1UNIT PER DAY
     Route: 048
     Dates: end: 20060906
  5. ATARAX [Suspect]
     Indication: ANXIETY
     Dosage: 25MG PER DAY
     Route: 048
     Dates: end: 20060906
  6. AMIODARONE [Concomitant]
     Route: 065
  7. IMOVANE [Concomitant]
     Route: 065
  8. TAHOR [Concomitant]
     Route: 065
  9. PREVISCAN [Concomitant]
     Route: 065
  10. LANZOR [Concomitant]
     Route: 065
  11. OMIX [Concomitant]
     Route: 065

REACTIONS (4)
  - CONFUSIONAL STATE [None]
  - DISORIENTATION [None]
  - FALL [None]
  - HALLUCINATION [None]
